FAERS Safety Report 6831033-3 (Version None)
Quarter: 2010Q3

REPORT INFORMATION
  Report Type: 
  Country: None (occurrence: None)
  Receive Date: 20100706
  Receipt Date: 20100623
  Transmission Date: 20110219
  Serious: Yes (Death, Hospitalization)
  Sender: FDA-Public Use
  Company Number: 2009AC000215

PATIENT
  Age: 60 Year
  Sex: Female

DRUGS (48)
  1. DIGOXIN [Suspect]
     Indication: ATRIAL FIBRILLATION
     Dosage: .25 MG; QD; PO
     Route: 048
     Dates: start: 20060301
  2. DIGOXIN [Suspect]
     Dosage: 0.25 MG; QD; PO
     Route: 048
     Dates: start: 20080101, end: 20080314
  3. ATROVENT [Concomitant]
  4. FORADIL [Concomitant]
  5. SPIRIVA [Concomitant]
  6. FLONASE [Concomitant]
  7. COUMADIN [Concomitant]
  8. HEPARIN [Concomitant]
  9. LIPITOR [Concomitant]
  10. SINGULAIR [Concomitant]
  11. ADVAIR DISKUS 100/50 [Concomitant]
  12. CARDIZEM [Concomitant]
  13. AVELOX [Concomitant]
  14. HUMIBID [Concomitant]
  15. ALBUTEROL [Concomitant]
  16. MEDROL [Concomitant]
  17. ADVAIR DISKUS 100/50 [Concomitant]
  18. ALBUTEROL [Concomitant]
  19. HUMIBID [Concomitant]
  20. COUMADIN [Concomitant]
  21. SINGULAIR [Concomitant]
  22. CARDIZEM CD [Concomitant]
  23. PREDNISONE [Concomitant]
  24. PRILOSEC [Concomitant]
  25. ADVAIR DISKUS 100/50 [Concomitant]
  26. SINGULAIR [Concomitant]
  27. PREDNISONE [Concomitant]
  28. LOVASTATIN [Concomitant]
  29. CARDIZEM [Concomitant]
  30. VASOTEC [Concomitant]
  31. LASIX [Concomitant]
  32. ERYTHROMYCIN [Concomitant]
  33. MAXAIR [Concomitant]
  34. PEPCID [Concomitant]
  35. ESTROGEN [Concomitant]
  36. PROGESTERONE [Concomitant]
  37. AMOXICILLIN [Concomitant]
  38. IBUPROFEN [Concomitant]
  39. GUAIFEN [Concomitant]
  40. AUGMENTIN '125' [Concomitant]
  41. WESTCORT [Concomitant]
  42. PROVENTIL [Concomitant]
  43. SUDAFED 12 HOUR [Concomitant]
  44. NITRO-BID [Concomitant]
  45. DILAUDID [Concomitant]
  46. SOY ESTROGEN [Concomitant]
  47. FAMOTIDINE [Concomitant]
  48. PRONESTYL [Concomitant]

REACTIONS (31)
  - ATELECTASIS [None]
  - ATRIAL FIBRILLATION [None]
  - BETA HAEMOLYTIC STREPTOCOCCAL INFECTION [None]
  - BRONCHITIS VIRAL [None]
  - BRONCHOSPASM [None]
  - CANDIDIASIS [None]
  - CARDIAC ARREST [None]
  - CARDIAC FAILURE CONGESTIVE [None]
  - CHEST DISCOMFORT [None]
  - CHRONIC OBSTRUCTIVE PULMONARY DISEASE [None]
  - COLD SWEAT [None]
  - CORONARY ARTERY DISEASE [None]
  - DISORIENTATION [None]
  - ECONOMIC PROBLEM [None]
  - FEELING ABNORMAL [None]
  - GASTROOESOPHAGEAL REFLUX DISEASE [None]
  - HEADACHE [None]
  - HYPERGLYCAEMIA [None]
  - HYPERKALAEMIA [None]
  - HYPERTENSION [None]
  - HYPOTENSION [None]
  - MUSCULOSKELETAL CHEST PAIN [None]
  - MYOCARDIAL INFARCTION [None]
  - NECK PAIN [None]
  - PAIN [None]
  - PALPITATIONS [None]
  - PLEURAL EFFUSION [None]
  - RENAL FAILURE ACUTE [None]
  - SEPSIS [None]
  - UPPER RESPIRATORY TRACT INFECTION [None]
  - WHEEZING [None]
